FAERS Safety Report 25833807 (Version 1)
Quarter: 2025Q3

REPORT INFORMATION
  Report Type: Spontaneous
  Country: KR (occurrence: KR)
  Receive Date: 20250923
  Receipt Date: 20250923
  Transmission Date: 20251021
  Serious: Yes (Hospitalization)
  Sender: ABBVIE
  Company Number: KR-ABBOTT-2025A-1402615

PATIENT
  Age: 40 Year
  Sex: Male
  Weight: 40.3 kg

DRUGS (2)
  1. DEPAKOTE [Suspect]
     Active Substance: DIVALPROEX SODIUM
     Indication: Schizophreniform disorder
     Dosage: 500 MG
     Route: 048
  2. LAMOTRIGINE [Suspect]
     Active Substance: LAMOTRIGINE
     Indication: Schizophreniform disorder
     Route: 065
     Dates: start: 20231115, end: 20231227

REACTIONS (4)
  - Conjunctival hyperaemia [Recovered/Resolved]
  - Angioedema [Recovered/Resolved]
  - Pyrexia [Recovered/Resolved]
  - Rash [Recovered/Resolved]

NARRATIVE: CASE EVENT DATE: 20231226
